FAERS Safety Report 16426857 (Version 1)
Quarter: 2019Q2

REPORT INFORMATION
  Report Type: Spontaneous
  Country: FR (occurrence: FR)
  Receive Date: 20190613
  Receipt Date: 20190613
  Transmission Date: 20190711
  Serious: Yes (Other)
  Sender: FDA-Public Use
  Company Number: FR-SA-2019SA152535

PATIENT
  Age: 91 Year
  Sex: Female
  Weight: 77.2 kg

DRUGS (1)
  1. LOVENOX [Suspect]
     Active Substance: ENOXAPARIN SODIUM
     Indication: PROPHYLAXIS
     Dosage: 1.6 ML, UNK
     Route: 058
     Dates: start: 20190301, end: 20190312

REACTIONS (2)
  - Haematoma [Recovered/Resolved]
  - Azotaemia [Recovered/Resolved]

NARRATIVE: CASE EVENT DATE: 20190307
